FAERS Safety Report 18289375 (Version 1)
Quarter: 2020Q3

REPORT INFORMATION
  Report Type: Spontaneous
  Country: DE (occurrence: DE)
  Receive Date: 20200921
  Receipt Date: 20200921
  Transmission Date: 20201103
  Serious: Yes (Hospitalization, Other)
  Sender: FDA-Public Use
  Company Number: DE-SA-2020SA252263

PATIENT

DRUGS (15)
  1. GEMCITABINE HYDROCHLORIDE. [Suspect]
     Active Substance: GEMCITABINE HYDROCHLORIDE
     Dosage: UNK
     Dates: end: 20200116
  2. PANTOPRAZOLE [Concomitant]
     Active Substance: PANTOPRAZOLE
     Dosage: 40 MG, QD
     Route: 048
  3. KALINOR?RETARD P [Concomitant]
     Dosage: 600 MG, 2?2?2?0
     Route: 048
  4. PACLITAXEL. [Suspect]
     Active Substance: PACLITAXEL
     Dosage: UNK
     Dates: end: 20200116
  5. ONDANSETRON [Concomitant]
     Active Substance: ONDANSETRON
     Dosage: 8 MG, BID
     Route: 048
  6. METOCLOPRAMIDE. [Concomitant]
     Active Substance: METOCLOPRAMIDE
     Dosage: 10 MG, TID
     Route: 048
  7. LORAZEPAM. [Concomitant]
     Active Substance: LORAZEPAM
     Dosage: 1 MG, PRN
     Route: 048
  8. FENTANYL. [Concomitant]
     Active Substance: FENTANYL
     Dosage: 75 UG/H, CHANGE EVERY 3 DAYS,
     Route: 062
  9. METAMIZOLE [Concomitant]
     Active Substance: METAMIZOLE
     Dosage: 500 MG, PRN
     Route: 048
  10. ENOXAPARIN SODIUM. [Suspect]
     Active Substance: ENOXAPARIN SODIUM
     Dosage: 0.4 ML, QD, AMPULES
     Route: 058
  11. ALLOPURINOL. [Concomitant]
     Active Substance: ALLOPURINOL
     Dosage: 100 MG, QD
     Route: 048
  12. METOPROLOL. [Concomitant]
     Active Substance: METOPROLOL
     Dosage: 95 MG, 0.5?0?0.5?0
     Route: 048
  13. DEXAMETHASONE. [Concomitant]
     Active Substance: DEXAMETHASONE
     Dosage: 4 MG, QD
     Route: 048
  14. MORPHINE [Concomitant]
     Active Substance: MORPHINE
     Dosage: 10 MG, BID
     Route: 048
  15. OLANZAPIN [Concomitant]
     Active Substance: OLANZAPINE
     Dosage: 5 MG, QD
     Route: 048

REACTIONS (7)
  - Mucosal haemorrhage [Recovering/Resolving]
  - Pallor [Recovering/Resolving]
  - Haematochezia [Recovering/Resolving]
  - Dyspnoea [Recovering/Resolving]
  - Dizziness [Recovering/Resolving]
  - Anaemia [Recovering/Resolving]
  - General physical health deterioration [Recovering/Resolving]
